FAERS Safety Report 4507781-7 (Version None)
Quarter: 2004Q4

REPORT INFORMATION
  Report Type: 
  Country: None (occurrence: None)
  Receive Date: 20041123
  Receipt Date: 20041116
  Transmission Date: 20050328
  Serious: Yes (Disabling)
  Sender: FDA-Public Use
  Company Number: US-ABBOTT-04P-163-0280715-00

PATIENT
  Sex: Female

DRUGS (2)
  1. SYNTHROID [Suspect]
     Indication: HYPOTHYROIDISM
     Route: 048
     Dates: start: 19990101, end: 20000101
  2. SYNTHROID [Suspect]
     Dates: start: 20000101

REACTIONS (3)
  - DEAFNESS [None]
  - DEAFNESS UNILATERAL [None]
  - TACHYCARDIA [None]
